FAERS Safety Report 23291453 (Version 1)
Quarter: 2023Q4

REPORT INFORMATION
  Report Type: Spontaneous
  Country: US (occurrence: US)
  Receive Date: 20231213
  Receipt Date: 20231213
  Transmission Date: 20240110
  Serious: Yes (Other)
  Sender: FDA-Public Use
  Company Number: US-KOANAAP-SML-US-2023-01676

PATIENT
  Age: 75 Year
  Sex: Female

DRUGS (3)
  1. IRINOTECAN [Suspect]
     Active Substance: IRINOTECAN
     Indication: Undifferentiated sarcoma
  2. TEMODAR [Suspect]
     Active Substance: TEMOZOLOMIDE
     Indication: Undifferentiated sarcoma
  3. PAZOPANIB [Suspect]
     Active Substance: PAZOPANIB
     Indication: Undifferentiated sarcoma

REACTIONS (2)
  - Disease progression [Unknown]
  - Drug ineffective [Unknown]
